FAERS Safety Report 12171723 (Version 2)
Quarter: 2016Q2

REPORT INFORMATION
  Report Type: Spontaneous
  Country: US (occurrence: US)
  Receive Date: 20160311
  Receipt Date: 20160412
  Transmission Date: 20160815
  Serious: Yes (Hospitalization)
  Sender: FDA-Public Use
  Company Number: US-BEH-2016059610

PATIENT
  Sex: Female
  Weight: 67 kg

DRUGS (17)
  1. HIZENTRA [Suspect]
     Active Substance: HUMAN IMMUNOGLOBULIN G
     Indication: IMMUNODEFICIENCY COMMON VARIABLE
     Route: 058
     Dates: start: 20150817
  2. HYQVIA [Suspect]
     Active Substance: HUMAN IMMUNOGLOBULIN G\HYALURONIDASE RECOMBINANT HUMAN
     Indication: IMMUNODEFICIENCY COMMON VARIABLE
     Dosage: STARTED TWO WEEKS AGO-APPROXIMATELY 15-MAR-2016
     Dates: end: 20160330
  3. EPIPEN [Concomitant]
     Active Substance: EPINEPHRINE
  4. ZOCOR [Concomitant]
     Active Substance: SIMVASTATIN
  5. FLONASE [Concomitant]
     Active Substance: FLUTICASONE PROPIONATE
  6. TYLENOL [Concomitant]
     Active Substance: ACETAMINOPHEN
  7. IPRATROPIUM [Concomitant]
     Active Substance: IPRATROPIUM
  8. NAFTIN [Concomitant]
     Active Substance: NAFTIFINE HYDROCHLORIDE
  9. OXYCODONE [Concomitant]
     Active Substance: OXYCODONE
  10. MUCINEX [Concomitant]
     Active Substance: GUAIFENESIN
  11. STOOL SOFTNER [Concomitant]
     Active Substance: DOCUSATE SODIUM
  12. PREDNISONE. [Concomitant]
     Active Substance: PREDNISONE
  13. COMBIVENT [Concomitant]
     Active Substance: ALBUTEROL SULFATE\IPRATROPIUM BROMIDE
  14. ATIVAN [Concomitant]
     Active Substance: LORAZEPAM
  15. DIPHENHYDRAMINE. [Concomitant]
     Active Substance: DIPHENHYDRAMINE
  16. CELEXA [Concomitant]
     Active Substance: CITALOPRAM HYDROBROMIDE
  17. ZYFLO [Concomitant]
     Active Substance: ZILEUTON

REACTIONS (1)
  - Pneumonia [Unknown]
